FAERS Safety Report 6371217-4 (Version None)
Quarter: 2009Q3

REPORT INFORMATION
  Report Type: 
  Country: None (occurrence: None)
  Receive Date: 20090923
  Receipt Date: 20070706
  Transmission Date: 20100115
  Serious: No
  Sender: FDA-Public Use
  Company Number: US-ASTRAZENECA-2006UW27728

PATIENT
  Age: 49 Year
  Sex: Male
  Weight: 151.5 kg

DRUGS (18)
  1. SEROQUEL [Suspect]
     Indication: SCHIZOPHRENIA
     Dosage: 25-300 MG
     Route: 048
     Dates: start: 20001027
  2. SEROQUEL [Suspect]
     Route: 048
     Dates: start: 20030401
  3. ABILIFY [Concomitant]
     Dosage: 10-15 MG
     Dates: start: 20021211
  4. ABILIFY [Concomitant]
     Dates: start: 20050101
  5. HALDOL [Concomitant]
     Dates: start: 19970101
  6. HALDOL [Concomitant]
     Dosage: 5-10 MG AT NIGHT
     Dates: start: 19790101
  7. ZYPREXA [Concomitant]
     Dosage: 5-15 MG
     Dates: start: 20001027
  8. WELLBUTRIN [Concomitant]
     Dosage: 150-200 MG,TWO TIMES A DAY
     Dates: start: 20001011
  9. LECITHIN [Concomitant]
  10. DEPAKOTE [Concomitant]
     Dosage: 500 MG,2 TABLETS AT NIGHT
     Dates: start: 20001011
  11. RESTORIL [Concomitant]
     Indication: INSOMNIA
     Dosage: 15 MG,2 TABLETS AT NIGHT
     Dates: start: 20030207
  12. LORAZEPAM [Concomitant]
     Indication: ANXIETY
     Dosage: 0.5MG,1-2 TABLET DAILY PRN
     Dates: start: 20021210
  13. LORAZEPAM [Concomitant]
     Indication: INSOMNIA
     Dosage: 0.5MG,1-2 TABLET DAILY PRN
     Dates: start: 20021210
  14. COGENTIN [Concomitant]
     Dosage: 0.5-1 MG,TWO TIMES A DAY
     Dates: start: 20020513
  15. LOXITANE [Concomitant]
     Dates: start: 20060412
  16. LITHIUM CARBONATE [Concomitant]
     Dates: start: 20060412
  17. TRICOR [Concomitant]
     Dates: start: 20050823
  18. LOPID [Concomitant]
     Dates: start: 20021023

REACTIONS (4)
  - BACK INJURY [None]
  - DIABETES MELLITUS [None]
  - MUSCLE STRAIN [None]
  - TYPE 2 DIABETES MELLITUS [None]
